FAERS Safety Report 25904964 (Version 1)
Quarter: 2025Q4

REPORT INFORMATION
  Report Type: Spontaneous
  Country: EU (occurrence: EU)
  Receive Date: 20251010
  Receipt Date: 20251010
  Transmission Date: 20260117
  Serious: Yes (Life-Threatening, Hospitalization, Other)
  Sender: CHEPLAPHARM
  Company Number: None

PATIENT
  Age: 32 Year
  Sex: Male
  Weight: 70 kg

DRUGS (6)
  1. CLONAZEPAM [Suspect]
     Active Substance: CLONAZEPAM
  2. BROMAZEPAM [Suspect]
     Active Substance: BROMAZEPAM
  3. CANNABIS SATIVA SUBSP. INDICA TOP [Suspect]
     Active Substance: CANNABIS SATIVA SUBSP. INDICA TOP
  4. COCAINE [Suspect]
     Active Substance: COCAINE
  5. PREGABALIN [Suspect]
     Active Substance: PREGABALIN
  6. ALCOHOL (ALCOHOL) [Suspect]
     Active Substance: ALCOHOL

REACTIONS (8)
  - Coma [Recovered/Resolved]
  - Hypothermia [Recovered/Resolved]
  - Seizure [Recovered/Resolved]
  - Mydriasis [Recovered/Resolved]
  - Bradycardia [Not Recovered/Not Resolved]
  - Drug use disorder [Unknown]
  - Overdose [Recovering/Resolving]
  - Hypoglycaemia [Recovering/Resolving]

NARRATIVE: CASE EVENT DATE: 20250614
